FAERS Safety Report 8764777 (Version 1)
Quarter: 2012Q4

REPORT INFORMATION
  Report Type: 
  Country: CN (occurrence: CN)
  Receive Date: 20120831
  Receipt Date: 20120831
  Transmission Date: 20130627
  Serious: Yes (Death, Hospitalization)
  Sender: FDA-Public Use
  Company Number: CN-ROCHE-1103378

PATIENT
  Age: 80 None
  Sex: Male
  Weight: 55 kg

DRUGS (2)
  1. CELLCEPT [Suspect]
     Indication: RENAL TRANSPLANT
     Dates: start: 20020120, end: 20081120
  2. CYCLOSPORINE [Suspect]
     Indication: RENAL TRANSPLANT
     Route: 048
     Dates: start: 20020120, end: 20081120

REACTIONS (4)
  - Disseminated intravascular coagulation [Fatal]
  - Sarcoma [Recovering/Resolving]
  - Haematuria [Unknown]
  - Haematochezia [Unknown]
